FAERS Safety Report 8501320-1 (Version None)
Quarter: 2012Q3

REPORT INFORMATION
  Report Type: 
  Country: None (occurrence: None)
  Receive Date: 20120710
  Receipt Date: 20120705
  Transmission Date: 20120928
  Serious: No
  Sender: FDA-Public Use
  Company Number: US-PFIZER INC-2012162429

PATIENT
  Sex: Male
  Weight: 83.9 kg

DRUGS (5)
  1. ACETYLSALICYLIC ACID [Concomitant]
     Dosage: 81 MG, DAILY
  2. METOPROLOL [Concomitant]
     Dosage: 25 MG, DAILY
  3. LISINOPRIL [Concomitant]
     Dosage: 10 MG, DAILY
  4. TRICOR [Concomitant]
     Dosage: 145 MG, DAILY
  5. LIPITOR [Suspect]
     Indication: BLOOD CHOLESTEROL INCREASED
     Dosage: 85 MG, DAILY
     Route: 048
     Dates: end: 20120704

REACTIONS (1)
  - DRUG INEFFECTIVE [None]
